FAERS Safety Report 24560282 (Version 1)
Quarter: 2024Q4

REPORT INFORMATION
  Report Type: Spontaneous
  Country: PL (occurrence: None)
  Receive Date: 20241029
  Receipt Date: 20241029
  Transmission Date: 20250115
  Serious: Yes (Hospitalization, Other)
  Sender: UNICHEM
  Company Number: PL-Unichem Pharmaceuticals (USA) Inc-UCM202410-001407

PATIENT
  Age: 46 Year

DRUGS (1)
  1. CARBAMAZEPINE [Suspect]
     Active Substance: CARBAMAZEPINE
     Indication: Product used for unknown indication

REACTIONS (12)
  - Cardiac arrest [Recovered/Resolved]
  - Respiratory distress [Recovered/Resolved]
  - Ventricular tachycardia [Recovered/Resolved]
  - Ventricular fibrillation [Recovered/Resolved]
  - Electrocardiogram change [Recovered/Resolved]
  - Haemodynamic instability [Recovered/Resolved]
  - Arteriospasm coronary [Recovered/Resolved]
  - Electrolyte imbalance [Recovered/Resolved]
  - Altered state of consciousness [Unknown]
  - Suicide attempt [Unknown]
  - Toxicity to various agents [Unknown]
  - Overdose [Unknown]
